FAERS Safety Report 5937546-0 (Version None)
Quarter: 2008Q4

REPORT INFORMATION
  Report Type: 
  Country: None (occurrence: None)
  Receive Date: 20081031
  Receipt Date: 20081024
  Transmission Date: 20090506
  Serious: Yes (Life-Threatening, Other)
  Sender: FDA-Public Use
  Company Number: JP-ABBOTT-08P-087-0435030-01

PATIENT
  Sex: Male
  Weight: 68 kg

DRUGS (31)
  1. HUMIRA [Suspect]
     Indication: CROHN'S DISEASE
     Route: 058
     Dates: start: 20080108, end: 20080108
  2. CLINDAMYCIN HCL [Concomitant]
     Indication: ACNE
     Route: 062
     Dates: start: 20071020
  3. PREDNISOLONE [Concomitant]
     Indication: CROHN'S DISEASE
     Route: 048
     Dates: end: 20080107
  4. PREDNISOLONE [Concomitant]
     Dates: start: 20080109, end: 20080111
  5. ELENTAL [Concomitant]
     Indication: CROHN'S DISEASE
     Dates: end: 20080107
  6. VEEN D [Concomitant]
     Indication: FLUID REPLACEMENT
     Route: 042
     Dates: start: 20080108, end: 20080109
  7. VEEN 3G [Concomitant]
     Indication: FLUID REPLACEMENT
     Route: 042
     Dates: start: 20080108, end: 20080109
  8. PRIMAXIN [Concomitant]
     Indication: LIVER ABSCESS
     Route: 042
     Dates: start: 20080108, end: 20080108
  9. PRIMAXIN [Concomitant]
     Route: 042
     Dates: start: 20080109, end: 20080110
  10. CLINDAMYCIN HCL [Concomitant]
     Indication: LIVER ABSCESS
     Route: 042
     Dates: start: 20080108, end: 20080108
  11. CLINDAMYCIN HCL [Concomitant]
     Route: 042
     Dates: start: 20080109, end: 20080111
  12. IMMUNE GLOBULIN INTRAVENOUS (HUMAN) [Concomitant]
     Indication: LIVER ABSCESS
     Route: 042
     Dates: start: 20080108, end: 20080110
  13. SOLITA-T3 [Concomitant]
     Indication: FLUID REPLACEMENT
     Route: 042
     Dates: start: 20080109, end: 20080109
  14. SOLITA-T3 [Concomitant]
     Route: 042
     Dates: start: 20080109, end: 20080110
  15. GABEXATE MESILATE [Concomitant]
     Indication: PROPHYLAXIS
     Route: 042
     Dates: start: 20080109, end: 20080109
  16. GABEXATE MESILATE [Concomitant]
     Indication: DISSEMINATED INTRAVASCULAR COAGULATION
     Dates: start: 20080110, end: 20080111
  17. FULCALIQ 2 [Concomitant]
     Indication: FLUID REPLACEMENT
     Route: 042
     Dates: start: 20080109, end: 20080110
  18. FULCALIQ 2 [Concomitant]
     Dates: start: 20080111, end: 20080111
  19. FAMOTIDINE [Concomitant]
     Indication: PROPHYLAXIS AGAINST GASTROINTESTINAL ULCER
     Route: 042
     Dates: start: 20080109, end: 20080110
  20. PHENOBARBITAL TAB [Concomitant]
     Indication: CONVULSION PROPHYLAXIS
     Route: 058
     Dates: start: 20080109, end: 20080113
  21. ISOTONIC SODIUM CHLORIDE [Concomitant]
     Indication: FLUID REPLACEMENT
     Route: 042
     Dates: start: 20080110, end: 20080110
  22. CIMETIDINE [Concomitant]
     Indication: DRUG USE FOR UNKNOWN INDICATION
     Dates: start: 20080111, end: 20080111
  23. SOLITA-T1 [Concomitant]
     Indication: FLUID REPLACEMENT
     Route: 042
     Dates: start: 20080108, end: 20080108
  24. HYDROXYZINE HYDROCHLORIDE [Concomitant]
     Indication: ABDOMINAL PAIN
     Dates: start: 20080108, end: 20080111
  25. HYDROXYZINE HYDROCHLORIDE [Concomitant]
     Indication: LIVER ABSCESS
  26. PENTAZOCINE LACTATE [Concomitant]
     Indication: DRUG USE FOR UNKNOWN INDICATION
     Route: 042
     Dates: start: 20080108, end: 20080111
  27. LENDORMIN D [Concomitant]
     Indication: INSOMNIA
     Route: 048
     Dates: start: 20080109, end: 20080109
  28. PHENOBAL 10% [Concomitant]
     Indication: CONVULSION PROPHYLAXIS
     Dates: end: 20080108
  29. LOPAMIRON [Concomitant]
     Indication: DRUG USE FOR UNKNOWN INDICATION
     Dates: start: 20080108, end: 20080108
  30. LOPAMIRON [Concomitant]
     Dates: start: 20080111, end: 20080111
  31. XYLOCAINE [Concomitant]
     Indication: DRUG USE FOR UNKNOWN INDICATION
     Dates: start: 20080110, end: 20080110

REACTIONS (3)
  - ACUTE RESPIRATORY DISTRESS SYNDROME [None]
  - CARDIAC DISORDER [None]
  - SYSTEMIC INFLAMMATORY RESPONSE SYNDROME [None]
